FAERS Safety Report 9168674 (Version 2)
Quarter: 2013Q2

REPORT INFORMATION
  Report Type: Spontaneous
  Country: US (occurrence: US)
  Receive Date: 20130318
  Receipt Date: 20130427
  Transmission Date: 20140414
  Serious: Yes (Other)
  Sender: FDA-Public Use
  Company Number: US-PFIZER INC-2013089120

PATIENT
  Age: 63 Year
  Sex: Female
  Weight: 81.63 kg

DRUGS (6)
  1. XELJANZ [Suspect]
     Indication: RHEUMATOID ARTHRITIS
     Dosage: 5 MG, 2X/DAY
     Route: 048
     Dates: start: 20130107
  2. XELJANZ [Suspect]
     Indication: PSORIATIC ARTHROPATHY
  3. XELJANZ [Suspect]
     Indication: RHEUMATOID ARTHRITIS
  4. ENBREL [Concomitant]
     Dosage: UNK
  5. HUMIRA [Concomitant]
     Dosage: UNK
  6. PREDNISONE [Concomitant]
     Indication: PSORIATIC ARTHROPATHY
     Dosage: 2 MG, UNK

REACTIONS (4)
  - Pharyngeal haemorrhage [Recovering/Resolving]
  - Epistaxis [Recovering/Resolving]
  - Malaise [Recovering/Resolving]
  - Bronchitis [Unknown]
